FAERS Safety Report 12634299 (Version 1)
Quarter: 2016Q3

REPORT INFORMATION
  Report Type: Other
  Country: FR (occurrence: FR)
  Receive Date: 20160808
  Receipt Date: 20160808
  Transmission Date: 20161109
  Serious: Yes (Hospitalization)
  Sender: FDA-Public Use
  Company Number: FR-SYMPLMED PHARMACEUTICALS-2016SYMPLMED000288

PATIENT

DRUGS (8)
  1. METFORMINE [Concomitant]
     Active Substance: METFORMIN HYDROCHLORIDE
     Indication: PRODUCT USED FOR UNKNOWN INDICATION
     Dosage: UNK
  2. DONEPEZIL                          /01318902/ [Concomitant]
     Active Substance: DONEPEZIL
     Indication: PRODUCT USED FOR UNKNOWN INDICATION
     Dosage: UNK
  3. BIPROFENID [Suspect]
     Active Substance: KETOPROFEN
     Indication: OSTEOARTHRITIS
     Dosage: 100 MG, QD
     Route: 048
     Dates: start: 20160520, end: 20160608
  4. BIPROFENID [Suspect]
     Active Substance: KETOPROFEN
     Dosage: 2 (100MG) TABLETS, QD
     Route: 065
     Dates: start: 20160609, end: 20160619
  5. VOLTARENE                          /00372303/ [Suspect]
     Active Substance: DICLOFENAC DIETHYLAMINE
     Indication: OSTEOARTHRITIS
     Dosage: 1 DF, QD
     Route: 062
     Dates: start: 20160520, end: 20160619
  6. COVERSYL [Suspect]
     Active Substance: PERINDOPRIL
     Indication: ESSENTIAL HYPERTENSION
     Dosage: 2 MG, QD
     Route: 048
     Dates: end: 20160625
  7. FLUDEX                             /00340101/ [Suspect]
     Active Substance: INDAPAMIDE
     Indication: HYPERTENSION
     Dosage: 1.5 MG, QD
     Route: 048
     Dates: end: 20160625
  8. SEROPLEX [Concomitant]
     Active Substance: ESCITALOPRAM OXALATE
     Indication: PRODUCT USED FOR UNKNOWN INDICATION
     Dosage: UNK

REACTIONS (7)
  - Dehydration [Unknown]
  - Lactic acidosis [Unknown]
  - Neurological decompensation [Unknown]
  - Hyperkalaemia [Unknown]
  - Abdominal pain [Unknown]
  - Acute kidney injury [Recovered/Resolved]
  - Vomiting [Unknown]

NARRATIVE: CASE EVENT DATE: 201606
